FAERS Safety Report 12667784 (Version 1)
Quarter: 2016Q3

REPORT INFORMATION
  Report Type: Report from Study
  Country: NL (occurrence: NL)
  Receive Date: 20160819
  Receipt Date: 20160819
  Transmission Date: 20161109
  Serious: Yes (Life-Threatening)
  Sender: FDA-Public Use
  Company Number: NL-ABBVIE-16K-114-1679603-00

PATIENT
  Sex: Male

DRUGS (1)
  1. DUODOPA [Suspect]
     Active Substance: CARBIDOPA\LEVODOPA
     Indication: PARKINSON^S DISEASE
     Dosage: MORNING DOSE: 9, CONTINUOUS DOSE: 5, EXTRA DOSE: 2, NIGHT DOSE: 3.9
     Route: 050
     Dates: start: 20100331

REACTIONS (4)
  - Terminal state [Unknown]
  - Weight decreased [Not Recovered/Not Resolved]
  - Dementia [Unknown]
  - Selective eating disorder [Unknown]
